FAERS Safety Report 10409378 (Version 1)
Quarter: 2014Q3

REPORT INFORMATION
  Report Type: Spontaneous
  Country: US (occurrence: None)
  Receive Date: 20140825
  Receipt Date: 20140825
  Transmission Date: 20150326
  Serious: Yes (Hospitalization, Other)
  Sender: FDA-Public Use
  Company Number: None

PATIENT
  Age: 54 Year
  Sex: Female
  Weight: 53.07 kg

DRUGS (1)
  1. TUDORZA PRESSAIR [Suspect]
     Active Substance: ACLIDINIUM BROMIDE
     Indication: ILL-DEFINED DISORDER
     Dosage: 1 PUFF X 2 PER DAY  TWICE DAILY INHALATION
     Route: 055
     Dates: start: 20130813, end: 20140501

REACTIONS (1)
  - Bladder neoplasm [None]

NARRATIVE: CASE EVENT DATE: 20140821
